FAERS Safety Report 23828503 (Version 1)
Quarter: 2024Q2

REPORT INFORMATION
  Report Type: Spontaneous
  Country: US (occurrence: US)
  Receive Date: 20240508
  Receipt Date: 20240508
  Transmission Date: 20240716
  Serious: No
  Sender: FDA-Public Use
  Company Number: US-PADAGIS-2024PAD00723

PATIENT

DRUGS (2)
  1. IMIQUIMOD [Suspect]
     Active Substance: IMIQUIMOD
     Indication: Actinic keratosis
     Dosage: 1 DF DAILY (NOSE, FOREHEAD AND UNDER NOSE)
     Route: 061
     Dates: start: 20240416
  2. IMIQUIMOD [Suspect]
     Active Substance: IMIQUIMOD
     Indication: Precancerous condition

REACTIONS (5)
  - Stomatitis [Unknown]
  - Cheilitis [Unknown]
  - Inappropriate schedule of product administration [Unknown]
  - Product prescribing error [Unknown]
  - Product use in unapproved indication [Unknown]

NARRATIVE: CASE EVENT DATE: 20240416
